FAERS Safety Report 8432794-2 (Version None)
Quarter: 2012Q2

REPORT INFORMATION
  Report Type: 
  Country: None (occurrence: None)
  Receive Date: 20120613
  Receipt Date: 20120606
  Transmission Date: 20120825
  Serious: No
  Sender: FDA-Public Use
  Company Number: US-PFIZER INC-2012136701

PATIENT

DRUGS (1)
  1. DIFLUCAN [Suspect]
     Dosage: UNK

REACTIONS (2)
  - VOMITING [None]
  - NAUSEA [None]
